FAERS Safety Report 7930543-5 (Version None)
Quarter: 2011Q4

REPORT INFORMATION
  Report Type: 
  Country: None (occurrence: None)
  Receive Date: 20111121
  Receipt Date: 20111107
  Transmission Date: 20120403
  Serious: Yes (Hospitalization)
  Sender: FDA-Public Use
  Company Number: US-ROCHE-1013576

PATIENT

DRUGS (6)
  1. DOXORUBICIN HCL [Suspect]
     Indication: BREAST CANCER
     Dosage: AT 10-500ML/HR ON DAY 1, AFTER THE COMPLETION OF HERSEPTIN INFUSION (MAX CUMULATIVE DOSE 240 MG/M2),
     Route: 042
     Dates: start: 20030306
  2. HERCEPTIN [Suspect]
     Indication: BREAST CANCER
     Dosage: ON WEEK 1 OF CYCLE 1 LOADING DOSE 4 MG/KG OVER 90 MIN IS TO BE ADMINISTERED.
     Route: 042
     Dates: start: 20030306
  3. PYRIDOXINE HCL [Suspect]
     Indication: BREAST CANCER
     Dosage: QD STARTING ON DAY 1 OF CYCLE 1 FOR AS LONG AS DOXIL IS ADMINISTERED.
     Route: 048
     Dates: start: 20030306
  4. HERCEPTIN [Suspect]
     Dosage: 2 MG/KG IV OVER 30 MIN QW ON DAY 1 FOR 3 WEEKS, Q21D, FOR 8 CYCLES. NOTE: 2 MG/KG DOSE STARTING ON W
     Route: 042
  5. DOCETAXEL [Suspect]
     Dosage: DOCETAXEL (TAXOTERE) 75 MG/M2 IV OVER 1HR ON DAY 1Q21D
  6. DOCETAXEL [Suspect]
     Indication: BREAST CANCER
     Dosage: OVER 1 HR ON DAY 1, AFTER THE COMPLETION OF HERSEPTIN INFUSION, Q21D FOR 8 CYCLES.
     Route: 042
     Dates: start: 20030306

REACTIONS (3)
  - DIARRHOEA [None]
  - VOMITING [None]
  - DEHYDRATION [None]
